FAERS Safety Report 15321274 (Version 4)
Quarter: 2018Q4

REPORT INFORMATION
  Report Type: Spontaneous
  Country: US (occurrence: US)
  Receive Date: 20180827
  Receipt Date: 20181005
  Transmission Date: 20190204
  Serious: Yes (Other)
  Sender: FDA-Public Use
  Company Number: US-SA-2018SA236694

PATIENT
  Age: 50 Year
  Sex: Female

DRUGS (1)
  1. KEVZARA [Suspect]
     Active Substance: SARILUMAB
     Indication: RHEUMATOID ARTHRITIS
     Dosage: 200 MG, QOW
     Route: 058
     Dates: start: 20180524, end: 20180903

REACTIONS (7)
  - Scab [Not Recovered/Not Resolved]
  - Pain [Not Recovered/Not Resolved]
  - Mass [Not Recovered/Not Resolved]
  - Hepatitis [Not Recovered/Not Resolved]
  - Pruritus [Not Recovered/Not Resolved]
  - Unevaluable event [Unknown]
  - Erythema [Not Recovered/Not Resolved]

NARRATIVE: CASE EVENT DATE: 201808
